FAERS Safety Report 6581789-2 (Version None)
Quarter: 2010Q1

REPORT INFORMATION
  Report Type: 
  Country: None (occurrence: None)
  Receive Date: 20100215
  Receipt Date: 20100210
  Transmission Date: 20100710
  Serious: Yes (Life-Threatening)
  Sender: FDA-Public Use
  Company Number: PHEH2009US13343

PATIENT
  Sex: Female

DRUGS (17)
  1. DIOVAN HCT [Suspect]
     Dosage: 160/12.5 MG, UNK
  2. METOPROLOL TARTRATE [Suspect]
     Dosage: 50 MG, FOUR TIMES DAILY
  3. LEVOTHYROXINE SODIUM [Concomitant]
     Dosage: 75 MCG,UNK
  4. PRAVASTATIN [Concomitant]
     Dosage: 40 MG, UNK
  5. NASAL SPRAY [Concomitant]
  6. FLAXSEED OIL [Concomitant]
  7. COD-LIVER OIL [Concomitant]
  8. FISH OIL [Concomitant]
  9. SAM-E [Concomitant]
  10. CLARITIN [Concomitant]
  11. MSM [Concomitant]
  12. VITAMIN B-12 [Concomitant]
  13. VITAMIN B COMPLEX CAP [Concomitant]
  14. LYSINE [Concomitant]
  15. LUTEIN [Concomitant]
  16. CALCIUM [Concomitant]
  17. VITAMINS [Concomitant]

REACTIONS (12)
  - ABDOMINAL PAIN UPPER [None]
  - BLOOD PRESSURE INCREASED [None]
  - DECREASED INTEREST [None]
  - DYSPNOEA [None]
  - FATIGUE [None]
  - FEELING ABNORMAL [None]
  - FEELING JITTERY [None]
  - FLATULENCE [None]
  - HOT FLUSH [None]
  - IRRITABILITY [None]
  - PALPITATIONS [None]
  - WEIGHT INCREASED [None]
